FAERS Safety Report 10711859 (Version 1)
Quarter: 2015Q1

REPORT INFORMATION
  Report Type: Spontaneous
  Country: SK (occurrence: SK)
  Receive Date: 20150114
  Receipt Date: 20150114
  Transmission Date: 20150721
  Serious: Yes (Hospitalization)
  Sender: FDA-Public Use
  Company Number: SK-PFIZER INC-2015008292

PATIENT
  Age: 81 Year
  Sex: Female
  Weight: 58 kg

DRUGS (9)
  1. BETAHISTINE [Concomitant]
     Active Substance: BETAHISTINE
     Dosage: UNK
  2. SORTIS [Suspect]
     Active Substance: ATORVASTATIN
     Indication: HYPERCHOLESTEROLAEMIA
     Dosage: 80 MG, UNK
     Route: 048
     Dates: start: 201404, end: 201412
  3. AGEN [Concomitant]
     Dosage: UNK
  4. ANOPYRIN [Concomitant]
     Active Substance: ASPIRIN
     Dosage: UNK
  5. CITALOPRAM [Concomitant]
     Active Substance: CITALOPRAM HYDROBROMIDE
     Dosage: UNK
  6. CLOPIGAMMA [Concomitant]
     Dosage: UNK
  7. HELICID [Concomitant]
     Dosage: UNK
  8. MILURIT [Concomitant]
     Active Substance: ALLOPURINOL
     Dosage: UNK
  9. TELMISARTAN. [Concomitant]
     Active Substance: TELMISARTAN
     Dosage: UNK

REACTIONS (1)
  - Liver disorder [Recovered/Resolved]

NARRATIVE: CASE EVENT DATE: 20141212
